FAERS Safety Report 5207143-3 (Version None)
Quarter: 2007Q1

REPORT INFORMATION
  Report Type: 
  Country: None (occurrence: None)
  Receive Date: 20070112
  Receipt Date: 20070102
  Transmission Date: 20070707
  Serious: Yes (Hospitalization)
  Sender: FDA-Public Use
  Company Number: US-ROCHE-476934

PATIENT
  Age: 77 Year
  Sex: Female

DRUGS (3)
  1. CAPECITABINE [Suspect]
     Indication: ADENOCARCINOMA PANCREAS
     Route: 065
     Dates: start: 20061103
  2. BLINDED BEVACIZUMAB [Suspect]
     Indication: ADENOCARCINOMA PANCREAS
     Dosage: GIVEN OVER 90 MINUTES ON DAYS 1 AND 15 EVERY 28 DAYS.
     Route: 042
     Dates: start: 20051216, end: 20061020
  3. GEMCITABINE [Suspect]
     Indication: ADENOCARCINOMA PANCREAS
     Dosage: GIVEN OVER 30 MINUTES ON DAYS 1, 8 AND 15 EVERY 28 DAYS.
     Route: 042
     Dates: start: 20051216, end: 20061020

REACTIONS (4)
  - CONFUSIONAL STATE [None]
  - DISEASE PROGRESSION [None]
  - HERPES ZOSTER [None]
  - HYPERGLYCAEMIA [None]
